FAERS Safety Report 10248160 (Version 2)
Quarter: 2014Q2

REPORT INFORMATION
  Report Type: Report from Study
  Country: TH (occurrence: TH)
  Receive Date: 20140619
  Receipt Date: 20140619
  Transmission Date: 20141212
  Serious: Yes (Life-Threatening, Hospitalization)
  Sender: FDA-Public Use
  Company Number: TH-ROCHE-1013895

PATIENT
  Age: 63 Year
  Sex: Female
  Weight: 50 kg

DRUGS (19)
  1. OBINUTUZUMAB [Suspect]
     Indication: DIFFUSE LARGE B-CELL LYMPHOMA
     Dosage: DATE OF FIRST DOSE PRIOR TO SAE 28/OCT/2011
     Route: 042
     Dates: start: 20111028
  2. CYCLOPHOSPHAMIDE [Suspect]
     Indication: DIFFUSE LARGE B-CELL LYMPHOMA
     Dosage: DATE OF FIRST DOSE PRIOR TO SAE 28/OCT/2011
     Route: 042
     Dates: start: 20111028
  3. DOXORUBICIN [Suspect]
     Indication: DIFFUSE LARGE B-CELL LYMPHOMA
     Dosage: DATE OF FIRST DOSE PRIOR TO SAE 28/OCT/2011
     Route: 042
     Dates: start: 20111028
  4. VINCRISTINE [Suspect]
     Indication: DIFFUSE LARGE B-CELL LYMPHOMA
     Dosage: DATE OF FIRST DOSE PRIOR TO SAE 28/OCT/2011
     Route: 040
     Dates: start: 20111028
  5. PREDNISOLONE [Suspect]
     Indication: DIFFUSE LARGE B-CELL LYMPHOMA
     Dosage: DATE OF FIRST DOSE PRIOR TO SAE 28/OCT/2011
     Route: 048
     Dates: start: 20111028
  6. VITAMIN B COMPLEX [Concomitant]
     Route: 065
     Dates: start: 20111014
  7. CYPROHEPTADIN [Concomitant]
     Route: 065
     Dates: start: 20111014
  8. LORAZEPAM [Concomitant]
     Indication: ANXIETY
     Route: 065
     Dates: start: 20111014
  9. MOTILIUM [Concomitant]
     Indication: FLATULENCE
     Route: 065
     Dates: end: 20111028
  10. DEXAMETHASONE [Concomitant]
     Indication: PREMEDICATION
     Route: 065
     Dates: start: 20111028, end: 20111028
  11. PIRITON [Concomitant]
     Indication: PREMEDICATION
     Route: 065
     Dates: start: 20111028, end: 20111028
  12. PARACETAMOL [Concomitant]
     Indication: PREMEDICATION
     Route: 065
     Dates: start: 20111028, end: 20111028
  13. ONSIA [Concomitant]
     Indication: PREMEDICATION
     Route: 065
     Dates: start: 20111028, end: 20111028
  14. SODA MINT [Concomitant]
     Indication: PROPHYLAXIS
     Route: 065
     Dates: start: 20111028, end: 20111103
  15. OMEPRAZOLE [Concomitant]
     Route: 065
     Dates: start: 20111030, end: 20111126
  16. ZINC ACETATE [Concomitant]
     Indication: ZINC DEFICIENCY
     Route: 065
     Dates: start: 20111111, end: 20111222
  17. ZINC ACETATE [Concomitant]
     Indication: MALNUTRITION
  18. FOLIC ACID [Concomitant]
     Indication: NUTRITIONAL SUPPLEMENTATION
     Route: 065
     Dates: start: 20111114, end: 20111222
  19. MAGNESIUM SULPHATE [Concomitant]
     Indication: HYPOMAGNESAEMIA
     Route: 065
     Dates: start: 20111112, end: 20111114

REACTIONS (4)
  - Septic shock [Recovered/Resolved]
  - Febrile neutropenia [Recovered/Resolved]
  - Tumour lysis syndrome [Recovered/Resolved]
  - Thrombocytopenia [Recovered/Resolved]
